FAERS Safety Report 8838152 (Version 1)
Quarter: 2012Q4

REPORT INFORMATION
  Report Type: 
  Country: DE (occurrence: FR)
  Receive Date: 20121012
  Receipt Date: 20121012
  Transmission Date: 20130627
  Serious: Yes (Death)
  Sender: FDA-Public Use
  Company Number: FR-BRISTOL-MYERS SQUIBB COMPANY-17029471

PATIENT
  Age: 69 Year
  Sex: Female

DRUGS (5)
  1. GLUCOVANCE [Suspect]
     Indication: INTENTIONAL SELF-INJURY
     Dosage: 1df= possible intake of 60 tabs(once)
     Route: 048
  2. ALPRAZOLAM [Suspect]
     Indication: INTENTIONAL SELF-INJURY
     Dosage: 1df= possible intake of 60 tabs(once)
0.5mg tabs
     Route: 048
  3. EFFEXOR [Suspect]
     Indication: INTENTIONAL SELF-INJURY
     Dosage: 1df= possible intake 30 tabs(once)
75mg tabs
     Route: 048
  4. TERCIAN [Suspect]
     Indication: INTENTIONAL SELF-INJURY
     Dosage: 1df= possible intake of 60 tabs(once)
25mg Tabs
     Route: 048
  5. TERALITHE [Suspect]
     Indication: INTENTIONAL SELF-INJURY
     Dosage: 1df= possible intake of 60 tabs
400mg Tabs
     Route: 048

REACTIONS (5)
  - Lactic acidosis [Fatal]
  - Multi-organ failure [Fatal]
  - Disseminated intravascular coagulation [Fatal]
  - Renal failure acute [Fatal]
  - Intentional overdose [Fatal]
